FAERS Safety Report 22399949 (Version 2)
Quarter: 2023Q2

REPORT INFORMATION
  Report Type: Spontaneous
  Country: CH (occurrence: CH)
  Receive Date: 20230602
  Receipt Date: 20230613
  Transmission Date: 20230722
  Serious: Yes (Death)
  Sender: FDA-Public Use
  Company Number: CH-BAYER-2023A076750

PATIENT
  Age: 79 Year
  Sex: Male
  Weight: 66 kg

DRUGS (7)
  1. ULTRAVIST [Suspect]
     Active Substance: IOPROMIDE
     Indication: Computerised tomogram
     Dosage: UNK, ONCE
     Route: 042
     Dates: start: 20230530, end: 20230530
  2. ULTRAVIST [Suspect]
     Active Substance: IOPROMIDE
     Indication: Aortic aneurysm
  3. ULTRAVIST [Suspect]
     Active Substance: IOPROMIDE
     Indication: Aortic dissection
  4. XARELTO [Concomitant]
     Active Substance: RIVAROXABAN
  5. ALDACTONE [Concomitant]
     Active Substance: SPIRONOLACTONE
  6. AMLODIPINE [Concomitant]
     Active Substance: AMLODIPINE BESYLATE
  7. ATORVASTATIN [Concomitant]
     Active Substance: ATORVASTATIN

REACTIONS (2)
  - Respiratory arrest [Fatal]
  - Seizure [Fatal]

NARRATIVE: CASE EVENT DATE: 20230530
